FAERS Safety Report 14237900 (Version 1)
Quarter: 2017Q4

REPORT INFORMATION
  Report Type: Spontaneous
  Country: US (occurrence: US)
  Receive Date: 20171130
  Receipt Date: 20171130
  Transmission Date: 20180321
  Serious: Yes (Other)
  Sender: FDA-Public Use
  Company Number: US-TORRENT-00003886

PATIENT
  Age: 57 Year
  Sex: Male

DRUGS (10)
  1. OMEPRAZOLE. [Concomitant]
     Active Substance: OMEPRAZOLE
     Indication: PRODUCT USED FOR UNKNOWN INDICATION
  2. GUAIFENESIN. [Concomitant]
     Active Substance: GUAIFENESIN
     Indication: COUGH
     Dosage: PRN
  3. DOXYCYCLINE. [Concomitant]
     Active Substance: DOXYCYCLINE
     Indication: PRODUCT USED FOR UNKNOWN INDICATION
  4. ALBUTEROL. [Concomitant]
     Active Substance: ALBUTEROL
     Indication: PRODUCT USED FOR UNKNOWN INDICATION
     Dosage: INHALER
  5. TRAZODONE [Concomitant]
     Active Substance: TRAZODONE HYDROCHLORIDE
     Indication: AFFECTIVE DISORDER
     Dosage: EVERY NIGHT AT BEDTIME
  6. BUPROPION. [Concomitant]
     Active Substance: BUPROPION
     Indication: AFFECTIVE DISORDER
  7. IBUPROFEN. [Concomitant]
     Active Substance: IBUPROFEN
     Indication: PAIN
     Dosage: PRN
  8. ACETAMINOPHEN AND CODEINE [Concomitant]
     Active Substance: ACETAMINOPHEN\CODEINE PHOSPHATE
     Indication: PAIN
     Dosage: 30MG/300MG Q4 HOURS PRN
  9. CITALOPRAM [Concomitant]
     Active Substance: CITALOPRAM HYDROBROMIDE
     Indication: AFFECTIVE DISORDER
  10. LAMOTRIGINE. [Suspect]
     Active Substance: LAMOTRIGINE
     Indication: AFFECTIVE DISORDER

REACTIONS (1)
  - Dystonia [Recovered/Resolved]
